FAERS Safety Report 4435635-3 (Version None)
Quarter: 2004Q3

REPORT INFORMATION
  Report Type: 
  Country: None (occurrence: None)
  Receive Date: 20040726
  Receipt Date: 20040519
  Transmission Date: 20050211
  Serious: No
  Sender: FDA-Public Use
  Company Number: USA040567365

PATIENT
  Age: 82 Year
  Sex: Female

DRUGS (2)
  1. FORTEO [Suspect]
     Dosage: 20 UG 1 DAY
     Dates: start: 20040430
  2. TYLENOL [Concomitant]

REACTIONS (8)
  - ASTHENIA [None]
  - DIZZINESS [None]
  - DRY MOUTH [None]
  - EAR DISCOMFORT [None]
  - FATIGUE [None]
  - FEELING ABNORMAL [None]
  - PRODUCTIVE COUGH [None]
  - VISUAL ACUITY REDUCED [None]
